FAERS Safety Report 8363973-0 (Version None)
Quarter: 2012Q2

REPORT INFORMATION
  Report Type: 
  Country: None (occurrence: None)
  Receive Date: 20120516
  Receipt Date: 20120510
  Transmission Date: 20120825
  Serious: Yes (Hospitalization, Other)
  Sender: FDA-Public Use
  Company Number: US-PFIZER INC-2012115481

PATIENT
  Age: 50 Year
  Sex: Female

DRUGS (2)
  1. GABAPENTIN [Suspect]
     Dosage: 25 CAPSULES OF 300 MG
  2. GABAPENTIN [Suspect]
     Dosage: 80 CAPSULES OF 300 MG

REACTIONS (7)
  - STATUS EPILEPTICUS [None]
  - INTENTIONAL DRUG MISUSE [None]
  - POSTERIOR REVERSIBLE ENCEPHALOPATHY SYNDROME [None]
  - DEPRESSED LEVEL OF CONSCIOUSNESS [None]
  - MOVEMENT DISORDER [None]
  - RESPIRATORY DEPRESSION [None]
  - HYPERTENSION [None]
